FAERS Safety Report 20247884 (Version 1)
Quarter: 2021Q4

REPORT INFORMATION
  Report Type: Spontaneous
  Country: US (occurrence: None)
  Receive Date: 20211228
  Receipt Date: 20211228
  Transmission Date: 20220303
  Serious: Yes (Hospitalization)
  Sender: FDA-Public Use
  Company Number: None

PATIENT
  Sex: Male

DRUGS (4)
  1. MEKINIST [Suspect]
     Active Substance: TRAMETINIB DIMETHYL SULFOXIDE
     Indication: Lung neoplasm malignant
     Dosage: FREQUENCY : DAILY;  TAKE 1 TABLET (2 MG) BY MOUTH DAILY . TAKE 1 HR BEFORE OR 2 HRS AFTER MEAL. STOR
     Route: 048
     Dates: start: 20190111
  2. MEKINIST [Suspect]
     Active Substance: TRAMETINIB DIMETHYL SULFOXIDE
     Dosage: OTHER FREQUENCY : 1 HR OR 2HR -MEAL;?
     Route: 048
     Dates: start: 20190111
  3. TAFINLAR [Concomitant]
     Active Substance: DABRAFENIB MESYLATE
  4. TRELEGY AER ELLIPTA [Concomitant]

REACTIONS (2)
  - Therapy interrupted [None]
  - Urinary tract infection [None]
